FAERS Safety Report 4646708-4 (Version None)
Quarter: 2005Q2

REPORT INFORMATION
  Report Type: 
  Country: None (occurrence: None)
  Receive Date: 20050427
  Receipt Date: 20050422
  Transmission Date: 20051028
  Serious: Yes (Death)
  Sender: FDA-Public Use
  Company Number: CA-GLAXOSMITHKLINE-A0555616A

PATIENT
  Age: 39 Year
  Sex: Male

DRUGS (1)
  1. MALARONE [Suspect]
     Indication: PROPHYLAXIS

REACTIONS (3)
  - COMPLETED SUICIDE [None]
  - DEPRESSION [None]
  - FEELING ABNORMAL [None]
